FAERS Safety Report 8456902-2 (Version None)
Quarter: 2012Q2

REPORT INFORMATION
  Report Type: 
  Country: None (occurrence: None)
  Receive Date: 20120621
  Receipt Date: 20120612
  Transmission Date: 20120825
  Serious: Yes (Other)
  Sender: FDA-Public Use
  Company Number: CA-JNJFOC-20120607086

PATIENT
  Sex: Female
  Weight: 79.5 kg

DRUGS (6)
  1. BACLOFEN [Concomitant]
     Route: 065
  2. NAPROXEN [Concomitant]
     Route: 065
  3. REMICADE [Suspect]
     Indication: ANKYLOSING SPONDYLITIS
     Route: 042
     Dates: start: 20111006, end: 20120601
  4. TYLENOL W/ CODEINE NO. 3 [Concomitant]
     Route: 065
  5. PERCOCET [Concomitant]
     Route: 065
  6. BIRTH CONTROL PILLS [Concomitant]
     Indication: CONTRACEPTION
     Route: 048

REACTIONS (1)
  - HEPATOMEGALY [None]
